FAERS Safety Report 22639424 (Version 1)
Quarter: 2023Q2

REPORT INFORMATION
  Report Type: Spontaneous
  Country: US (occurrence: US)
  Receive Date: 20230626
  Receipt Date: 20230626
  Transmission Date: 20230721
  Serious: No
  Sender: FDA-Public Use
  Company Number: US-APOTEX-2022AP016735

PATIENT
  Sex: Female

DRUGS (1)
  1. ATORVASTATIN CALCIUM [Suspect]
     Active Substance: ATORVASTATIN CALCIUM
     Indication: Product used for unknown indication
     Dosage: 1 DOSAGE FORM, QD (DAILY)
     Route: 065
     Dates: start: 20221205, end: 202212

REACTIONS (6)
  - Hyperaesthesia teeth [Not Recovered/Not Resolved]
  - Headache [Not Recovered/Not Resolved]
  - Toothache [Unknown]
  - Eye pain [Unknown]
  - Gingival swelling [Recovering/Resolving]
  - Pain [Recovering/Resolving]

NARRATIVE: CASE EVENT DATE: 20221206
